FAERS Safety Report 26217733 (Version 1)
Quarter: 2025Q4

REPORT INFORMATION
  Report Type: Spontaneous
  Country: EU (occurrence: EU)
  Receive Date: 20251231
  Receipt Date: 20251231
  Transmission Date: 20260118
  Serious: Yes (Other)
  Sender: MYLAN
  Company Number: EU-MYLANLABS-2025M1110662

PATIENT
  Age: 74 Year
  Sex: Male

DRUGS (12)
  1. PREDNISONE [Suspect]
     Active Substance: PREDNISONE
     Indication: Immunoglobulin G4 related disease
     Dosage: 60 MILLIGRAM, QD
  2. PREDNISONE [Suspect]
     Active Substance: PREDNISONE
     Indication: Inflammatory pseudotumour
     Dosage: 60 MILLIGRAM, QD
     Route: 065
  3. PREDNISONE [Suspect]
     Active Substance: PREDNISONE
     Dosage: 60 MILLIGRAM, QD
     Route: 065
  4. PREDNISONE [Suspect]
     Active Substance: PREDNISONE
     Dosage: 60 MILLIGRAM, QD
  5. AZATHIOPRINE [Suspect]
     Active Substance: AZATHIOPRINE
     Indication: Immunoglobulin G4 related disease
     Dosage: 75 MILLIGRAM/KILOGRAM
  6. AZATHIOPRINE [Suspect]
     Active Substance: AZATHIOPRINE
     Indication: Inflammatory pseudotumour
     Dosage: 75 MILLIGRAM/KILOGRAM
     Route: 065
  7. AZATHIOPRINE [Suspect]
     Active Substance: AZATHIOPRINE
     Dosage: 75 MILLIGRAM/KILOGRAM
     Route: 065
  8. AZATHIOPRINE [Suspect]
     Active Substance: AZATHIOPRINE
     Dosage: 75 MILLIGRAM/KILOGRAM
  9. URSODIOL [Concomitant]
     Active Substance: URSODIOL
     Indication: Immunoglobulin G4 related disease
     Dosage: 300 MILLIGRAM, TID, THRICE DAILY
  10. URSODIOL [Concomitant]
     Active Substance: URSODIOL
     Indication: Hepatic actinomycosis
     Dosage: 300 MILLIGRAM, TID, THRICE DAILY
     Route: 065
  11. URSODIOL [Concomitant]
     Active Substance: URSODIOL
     Indication: Inflammatory pseudotumour
     Dosage: 300 MILLIGRAM, TID, THRICE DAILY
     Route: 065
  12. URSODIOL [Concomitant]
     Active Substance: URSODIOL
     Dosage: 300 MILLIGRAM, TID, THRICE DAILY

REACTIONS (4)
  - Hepatic actinomycosis [Recovering/Resolving]
  - Immunoglobulin G4 related disease [Recovering/Resolving]
  - Inflammatory pseudotumour [Recovering/Resolving]
  - Condition aggravated [Recovering/Resolving]
